FAERS Safety Report 5309324-7 (Version None)
Quarter: 2007Q2

REPORT INFORMATION
  Report Type: 
  Country: None (occurrence: None)
  Receive Date: 20070425
  Receipt Date: 20070425
  Transmission Date: 20071010
  Serious: No
  Sender: FDA-Public Use
  Company Number: None

PATIENT
  Sex: Female

DRUGS (2)
  1. SERTRALINE [Suspect]
     Indication: DEPRESSION
     Dosage: 50 MG
     Dates: start: 20070201, end: 20070301
  2. SERTRALINE [Suspect]
     Indication: PANIC DISORDER
     Dosage: 50 MG
     Dates: start: 20070201, end: 20070301

REACTIONS (7)
  - DISEASE RECURRENCE [None]
  - GASTROINTESTINAL DISORDER [None]
  - HEADACHE [None]
  - NIGHT SWEATS [None]
  - PANIC DISORDER [None]
  - PHARMACEUTICAL PRODUCT COMPLAINT [None]
  - TACHYCARDIA [None]
